FAERS Safety Report 13872424 (Version 2)
Quarter: 2017Q3

REPORT INFORMATION
  Report Type: Spontaneous
  Country: US (occurrence: US)
  Receive Date: 20170816
  Receipt Date: 20170911
  Transmission Date: 20171127
  Serious: No
  Sender: FDA-Public Use
  Company Number: US-PFIZER INC-2017354554

PATIENT
  Age: 59 Year
  Sex: Female
  Weight: 94.79 kg

DRUGS (15)
  1. HYDROCHLOROTHIAZIDE. [Concomitant]
     Active Substance: HYDROCHLOROTHIAZIDE
     Dosage: 25 MG, DAILY
     Dates: start: 20091012
  2. ATORVASTATIN CALCIUM. [Suspect]
     Active Substance: ATORVASTATIN CALCIUM
     Indication: BLOOD CHOLESTEROL INCREASED
     Dosage: 20 MG, UNK
  3. LEFLUNOMIDE. [Concomitant]
     Active Substance: LEFLUNOMIDE
     Dosage: 20 MG, DAILY (1 ORAL TAKE 1 TABLET DAILY)
     Route: 048
     Dates: start: 20170621
  4. XELJANZ XR [Suspect]
     Active Substance: TOFACITINIB CITRATE
     Dosage: 11 MG, DAILY (11 MG TABLET ER 24HR 1 (ONE) ORAL PO QD)
     Route: 048
     Dates: start: 20170612
  5. AMLODIPINE BESILATE [Suspect]
     Active Substance: AMLODIPINE BESYLATE
     Dosage: 5 MG, DAILY
     Dates: start: 20091012
  6. XELJANZ XR [Suspect]
     Active Substance: TOFACITINIB CITRATE
     Indication: RHEUMATOID ARTHRITIS
     Dosage: 11 MG, UNK
  7. LISINOPRIL. [Concomitant]
     Active Substance: LISINOPRIL
     Dosage: 40 MG, DAILY
     Route: 048
     Dates: start: 20091012
  8. VITAMIN D [Concomitant]
     Active Substance: CHOLECALCIFEROL
     Dosage: 2000 IU, UNK
     Route: 048
     Dates: start: 20161007
  9. ACTOPLUS MET [Concomitant]
     Dosage: UNK (PIOGLITAZONE: 15-METFORMIN: 850 MG TABLET), (1 TAB ORAL TWO TIMES DAILY)
     Route: 048
  10. AMLODIPINE BESILATE [Suspect]
     Active Substance: AMLODIPINE BESYLATE
     Dosage: 5 MG, UNK
  11. ATORVASTATIN CALCIUM. [Suspect]
     Active Substance: ATORVASTATIN CALCIUM
     Dosage: 20 MG, ALTERNATE DAY (1 TAB ORAL EVERY OTHER DAY)
     Route: 048
  12. SULINDAC. [Concomitant]
     Active Substance: SULINDAC
     Dosage: 200 MG, 2X/DAY (1ORAL 1 TWO TIMES A DAY)
     Route: 048
     Dates: start: 20170621
  13. XELJANZ XR [Suspect]
     Active Substance: TOFACITINIB CITRATE
     Indication: RHEUMATOID FACTOR
     Dosage: 11 MG, DAILY (Q DAY)
     Route: 048
     Dates: start: 20170417
  14. FOLIC ACID. [Concomitant]
     Active Substance: FOLIC ACID
     Dosage: 1 MG, DAILY  (1 MG TABLET 1 ORAL I PO QD)
     Route: 048
     Dates: start: 20170424
  15. FOSAMAX [Concomitant]
     Active Substance: ALENDRONATE SODIUM
     Dosage: 70 MG, WEEKLY (1 (ONE) ORAL TAKE 1 TAB PO WEEKLY)
     Route: 048
     Dates: start: 20170627

REACTIONS (3)
  - Myalgia [Unknown]
  - Peripheral swelling [Unknown]
  - Synovitis [Unknown]
